FAERS Safety Report 6249452-5 (Version None)
Quarter: 2009Q2

REPORT INFORMATION
  Report Type: 
  Country: None (occurrence: None)
  Receive Date: 20090629
  Receipt Date: 20090626
  Transmission Date: 20091009
  Serious: Yes (Hospitalization)
  Sender: FDA-Public Use
  Company Number: A0793587A

PATIENT
  Sex: Female

DRUGS (2)
  1. LAMICTAL [Suspect]
     Indication: OBSESSIVE-COMPULSIVE DISORDER
     Dosage: 100MG PER DAY
     Dates: start: 20090430, end: 20090612
  2. CITALOPRAM [Concomitant]

REACTIONS (9)
  - ANURIA [None]
  - HEPATIC ENZYME INCREASED [None]
  - HYPERSENSITIVITY [None]
  - LARYNGEAL OEDEMA [None]
  - ORAL DISORDER [None]
  - PYREXIA [None]
  - RESPIRATORY DISORDER [None]
  - SKIN LESION [None]
  - STREPTOCOCCAL INFECTION [None]
